FAERS Safety Report 5393028-9 (Version None)
Quarter: 2007Q3

REPORT INFORMATION
  Report Type: 
  Country: None (occurrence: None)
  Receive Date: 20070719
  Receipt Date: 20070705
  Transmission Date: 20080115
  Serious: Yes (Disabling)
  Sender: FDA-Public Use
  Company Number: S07-NLD-03035-01

PATIENT
  Age: 32 Year
  Sex: Female
  Weight: 65 kg

DRUGS (2)
  1. CITALOPRAM HYDROBROMIDE [Suspect]
     Dosage: 60 MG QD PO
     Route: 048
  2. CITALOPRAM HYDROBROMIDE [Suspect]

REACTIONS (4)
  - DRUG WITHDRAWAL SYNDROME [None]
  - MUSCLE RIGIDITY [None]
  - MUSCULAR WEAKNESS [None]
  - PAIN [None]
